FAERS Safety Report 21683895 (Version 1)
Quarter: 2022Q4

REPORT INFORMATION
  Report Type: Spontaneous
  Country: US (occurrence: None)
  Receive Date: 20221204
  Receipt Date: 20221204
  Transmission Date: 20230112
  Serious: No
  Sender: FDA-Public Use
  Company Number: None

PATIENT
  Age: 6 Year
  Sex: Female
  Weight: 18 kg

DRUGS (5)
  1. MONTELUKAST [Suspect]
     Active Substance: MONTELUKAST SODIUM
     Indication: Multiple allergies
     Dates: start: 20210811, end: 20220518
  2. PROBIOTICS [Concomitant]
  3. D [Concomitant]
  4. C [Concomitant]
  5. HERBALS [Concomitant]
     Active Substance: HERBALS

REACTIONS (7)
  - Anger [None]
  - Aggression [None]
  - Irritability [None]
  - Attention deficit hyperactivity disorder [None]
  - Enuresis [None]
  - Emotional disorder [None]
  - Nightmare [None]

NARRATIVE: CASE EVENT DATE: 20220518
